FAERS Safety Report 8946163 (Version 1)
Quarter: 2012Q4

REPORT INFORMATION
  Report Type: 
  Country: MY (occurrence: MY)
  Receive Date: 20121204
  Receipt Date: 20121204
  Transmission Date: 20130627
  Serious: Yes (Hospitalization, Other)
  Sender: FDA-Public Use
  Company Number: MY-ELI_LILLY_AND_COMPANY-MY201211007832

PATIENT
  Age: 51 Year
  Sex: Male

DRUGS (1)
  1. ZYPREXA [Suspect]
     Indication: MANIA
     Dosage: 5 mg, unknown

REACTIONS (3)
  - Cerebrovascular accident [Unknown]
  - Electrolyte imbalance [Unknown]
  - Inappropriate antidiuretic hormone secretion [Unknown]
